FAERS Safety Report 23596220 (Version 3)
Quarter: 2025Q1

REPORT INFORMATION
  Report Type: Spontaneous
  Country: US (occurrence: US)
  Receive Date: 20240305
  Receipt Date: 20250113
  Transmission Date: 20250409
  Serious: Yes (Hospitalization, Other)
  Sender: SANOFI AVENTIS
  Company Number: US-SA-SAC20240229000835

PATIENT
  Age: 80 Year
  Sex: Male
  Weight: 90.91 kg

DRUGS (23)
  1. DUPIXENT [Suspect]
     Active Substance: DUPILUMAB
     Indication: Dermatitis atopic
     Dosage: 300 MG, QOW
     Route: 058
     Dates: start: 202305
  2. GLIPIZIDE [Concomitant]
     Active Substance: GLIPIZIDE
  3. MYRBETRIQ [Concomitant]
     Active Substance: MIRABEGRON
  4. ATORVASTATIN CALCIUM [Concomitant]
     Active Substance: ATORVASTATIN CALCIUM
  5. FENOFIBRATE [Concomitant]
     Active Substance: FENOFIBRATE
  6. LOSARTAN POTASSIUM [Concomitant]
     Active Substance: LOSARTAN POTASSIUM
  7. DULOXETINE HYDROCHLORIDE [Concomitant]
     Active Substance: DULOXETINE HYDROCHLORIDE
  8. ITCH RELIEF [Concomitant]
  9. ZINC [Concomitant]
     Active Substance: ZINC
  10. VITAMIN D3 [Concomitant]
     Active Substance: CHOLECALCIFEROL
  11. VITAMIN B12 [Concomitant]
     Active Substance: CYANOCOBALAMIN
  12. ASPIRIN [Concomitant]
     Active Substance: ASPIRIN
  13. DONEPEZIL HYDROCHLORIDE [Concomitant]
     Active Substance: DONEPEZIL HYDROCHLORIDE
  14. FISH OIL [Concomitant]
     Active Substance: FISH OIL
  15. IBUPROFEN [Concomitant]
     Active Substance: IBUPROFEN
  16. GABAPENTIN [Concomitant]
     Active Substance: GABAPENTIN
  17. ESOMEPRAZOLE MAGNESIUM [Concomitant]
     Active Substance: ESOMEPRAZOLE MAGNESIUM
  18. VITAMINS [Concomitant]
     Active Substance: VITAMINS
  19. METFORMIN HYDROCHLORIDE [Concomitant]
     Active Substance: METFORMIN HYDROCHLORIDE
  20. AMLODIPINE BESYLATE [Concomitant]
     Active Substance: AMLODIPINE BESYLATE
  21. OMEPRAZOLE [Concomitant]
     Active Substance: OMEPRAZOLE
  22. Eb n3 [Concomitant]
  23. TRULICITY [Concomitant]
     Active Substance: DULAGLUTIDE

REACTIONS (14)
  - Pneumonia [Unknown]
  - Cholecystectomy [Unknown]
  - Suicidal ideation [Recovered/Resolved]
  - Nausea [Unknown]
  - White matter lesion [Unknown]
  - Memory impairment [Unknown]
  - Psoriasis [Unknown]
  - Illness [Unknown]
  - Fatigue [Unknown]
  - Back disorder [Unknown]
  - Limb discomfort [Unknown]
  - Nasopharyngitis [Unknown]
  - Pruritus [Unknown]
  - Therapeutic response decreased [Unknown]
